FAERS Safety Report 7089124-0 (Version None)
Quarter: 2010Q4

REPORT INFORMATION
  Report Type: 
  Country: None (occurrence: None)
  Receive Date: 20101108
  Receipt Date: 20101103
  Transmission Date: 20110411
  Serious: Yes (Hospitalization)
  Sender: FDA-Public Use
  Company Number: IT-BRISTOL-MYERS SQUIBB COMPANY-15367345

PATIENT
  Age: 90 Year
  Sex: Male

DRUGS (2)
  1. COUMADIN [Suspect]
     Indication: ATRIAL FIBRILLATION
     Route: 048
     Dates: start: 20090620, end: 20090623
  2. LANOXIN [Suspect]
     Indication: ATRIAL FIBRILLATION
     Dosage: LANOXIN 0.250 MG TABS
     Route: 048
     Dates: start: 20090620, end: 20090623

REACTIONS (4)
  - DIPLOPIA [None]
  - DIZZINESS [None]
  - HEADACHE [None]
  - NAUSEA [None]
